FAERS Safety Report 25808335 (Version 1)
Quarter: 2025Q3

REPORT INFORMATION
  Report Type: Spontaneous
  Country: IN (occurrence: IN)
  Receive Date: 20250916
  Receipt Date: 20250916
  Transmission Date: 20251021
  Serious: Yes (Other)
  Sender: MYLAN
  Company Number: IN-MYLANLABS-2025M1078539

PATIENT
  Age: 42 Year
  Sex: Male
  Weight: 73 kg

DRUGS (64)
  1. PREGABALIN [Suspect]
     Active Substance: PREGABALIN
     Indication: Trigeminal neuropathy
     Dosage: 75 MILLIGRAM, QD, TABLET
     Dates: start: 2019, end: 2019
  2. PREGABALIN [Suspect]
     Active Substance: PREGABALIN
     Indication: Injury
     Dosage: 75 MILLIGRAM, QD, TABLET
     Dates: start: 2019, end: 2019
  3. PREGABALIN [Suspect]
     Active Substance: PREGABALIN
     Dosage: 75 MILLIGRAM, QD, TABLET
     Route: 065
     Dates: start: 2019, end: 2019
  4. PREGABALIN [Suspect]
     Active Substance: PREGABALIN
     Dosage: 75 MILLIGRAM, QD, TABLET
     Route: 065
     Dates: start: 2019, end: 2019
  5. PREGABALIN [Suspect]
     Active Substance: PREGABALIN
     Dosage: INCREASED TO 2 TIMES/DAY, TABLET, BID
     Dates: start: 2019, end: 201912
  6. PREGABALIN [Suspect]
     Active Substance: PREGABALIN
     Dosage: INCREASED TO 2 TIMES/DAY, TABLET, BID
     Dates: start: 2019, end: 201912
  7. PREGABALIN [Suspect]
     Active Substance: PREGABALIN
     Dosage: INCREASED TO 2 TIMES/DAY, TABLET, BID
     Route: 065
     Dates: start: 2019, end: 201912
  8. PREGABALIN [Suspect]
     Active Substance: PREGABALIN
     Dosage: INCREASED TO 2 TIMES/DAY, TABLET, BID
     Route: 065
     Dates: start: 2019, end: 201912
  9. CARBAMAZEPINE [Suspect]
     Active Substance: CARBAMAZEPINE
     Indication: Trigeminal neuropathy
     Dosage: 200 MILLIGRAM, BID
     Route: 065
     Dates: start: 2019, end: 2019
  10. CARBAMAZEPINE [Suspect]
     Active Substance: CARBAMAZEPINE
     Indication: Injury
     Dosage: 200 MILLIGRAM, BID
     Dates: start: 2019, end: 2019
  11. CARBAMAZEPINE [Suspect]
     Active Substance: CARBAMAZEPINE
     Dosage: 200 MILLIGRAM, BID
     Dates: start: 2019, end: 2019
  12. CARBAMAZEPINE [Suspect]
     Active Substance: CARBAMAZEPINE
     Dosage: 200 MILLIGRAM, BID
     Route: 065
     Dates: start: 2019, end: 2019
  13. CARBAMAZEPINE [Suspect]
     Active Substance: CARBAMAZEPINE
     Dosage: 200 MILLIGRAM, BID
     Dates: start: 202203, end: 2022
  14. CARBAMAZEPINE [Suspect]
     Active Substance: CARBAMAZEPINE
     Dosage: 200 MILLIGRAM, BID
     Dates: start: 202203, end: 2022
  15. CARBAMAZEPINE [Suspect]
     Active Substance: CARBAMAZEPINE
     Dosage: 200 MILLIGRAM, BID
     Route: 065
     Dates: start: 202203, end: 2022
  16. CARBAMAZEPINE [Suspect]
     Active Substance: CARBAMAZEPINE
     Dosage: 200 MILLIGRAM, BID
     Route: 065
     Dates: start: 202203, end: 2022
  17. CARBAMAZEPINE [Suspect]
     Active Substance: CARBAMAZEPINE
     Dosage: 300 MILLIGRAM, QD
     Route: 065
     Dates: start: 2022, end: 202212
  18. CARBAMAZEPINE [Suspect]
     Active Substance: CARBAMAZEPINE
     Dosage: 300 MILLIGRAM, QD
     Dates: start: 2022, end: 202212
  19. CARBAMAZEPINE [Suspect]
     Active Substance: CARBAMAZEPINE
     Dosage: 300 MILLIGRAM, QD
     Dates: start: 2022, end: 202212
  20. CARBAMAZEPINE [Suspect]
     Active Substance: CARBAMAZEPINE
     Dosage: 300 MILLIGRAM, QD
     Route: 065
     Dates: start: 2022, end: 202212
  21. CARBAMAZEPINE [Suspect]
     Active Substance: CARBAMAZEPINE
  22. CARBAMAZEPINE [Suspect]
     Active Substance: CARBAMAZEPINE
  23. CARBAMAZEPINE [Suspect]
     Active Substance: CARBAMAZEPINE
     Route: 065
  24. CARBAMAZEPINE [Suspect]
     Active Substance: CARBAMAZEPINE
     Route: 065
  25. CARBAMAZEPINE [Suspect]
     Active Substance: CARBAMAZEPINE
     Dosage: 600 MILLIGRAM, QD, DOSE WAS GRADUALLY INCREASED TO 600 MG/DAY OVER TWO MONTHS
     Dates: start: 2022, end: 2022
  26. CARBAMAZEPINE [Suspect]
     Active Substance: CARBAMAZEPINE
     Dosage: 600 MILLIGRAM, QD, DOSE WAS GRADUALLY INCREASED TO 600 MG/DAY OVER TWO MONTHS
     Dates: start: 2022, end: 2022
  27. CARBAMAZEPINE [Suspect]
     Active Substance: CARBAMAZEPINE
     Dosage: 600 MILLIGRAM, QD, DOSE WAS GRADUALLY INCREASED TO 600 MG/DAY OVER TWO MONTHS
     Route: 065
     Dates: start: 2022, end: 2022
  28. CARBAMAZEPINE [Suspect]
     Active Substance: CARBAMAZEPINE
     Dosage: 600 MILLIGRAM, QD, DOSE WAS GRADUALLY INCREASED TO 600 MG/DAY OVER TWO MONTHS
     Route: 065
     Dates: start: 2022, end: 2022
  29. CARBAMAZEPINE [Suspect]
     Active Substance: CARBAMAZEPINE
  30. CARBAMAZEPINE [Suspect]
     Active Substance: CARBAMAZEPINE
     Route: 065
  31. CARBAMAZEPINE [Suspect]
     Active Substance: CARBAMAZEPINE
  32. CARBAMAZEPINE [Suspect]
     Active Substance: CARBAMAZEPINE
     Route: 065
  33. DULOXETINE [Suspect]
     Active Substance: DULOXETINE
     Indication: Trigeminal neuropathy
     Dosage: 30 MILLIGRAM, BID
     Dates: start: 2019, end: 202203
  34. DULOXETINE [Suspect]
     Active Substance: DULOXETINE
     Indication: Injury
     Dosage: 30 MILLIGRAM, BID
     Route: 065
     Dates: start: 2019, end: 202203
  35. DULOXETINE [Suspect]
     Active Substance: DULOXETINE
     Dosage: 30 MILLIGRAM, BID
     Route: 065
     Dates: start: 2019, end: 202203
  36. DULOXETINE [Suspect]
     Active Substance: DULOXETINE
     Dosage: 30 MILLIGRAM, BID
     Dates: start: 2019, end: 202203
  37. GABAPENTIN [Suspect]
     Active Substance: GABAPENTIN
     Indication: Trigeminal neuropathy
     Dosage: 200 MILLIGRAM, BID
     Dates: start: 202203, end: 2022
  38. GABAPENTIN [Suspect]
     Active Substance: GABAPENTIN
     Indication: Injury
     Dosage: 200 MILLIGRAM, BID
     Route: 065
     Dates: start: 202203, end: 2022
  39. GABAPENTIN [Suspect]
     Active Substance: GABAPENTIN
     Dosage: 200 MILLIGRAM, BID
     Route: 065
     Dates: start: 202203, end: 2022
  40. GABAPENTIN [Suspect]
     Active Substance: GABAPENTIN
     Dosage: 200 MILLIGRAM, BID
     Dates: start: 202203, end: 2022
  41. HERBALS [Suspect]
     Active Substance: HERBALS
     Indication: Trigeminal neuropathy
  42. HERBALS [Suspect]
     Active Substance: HERBALS
     Indication: Injury
     Route: 065
  43. HERBALS [Suspect]
     Active Substance: HERBALS
     Route: 065
  44. HERBALS [Suspect]
     Active Substance: HERBALS
  45. VITAMIN B-COMPLEX [Concomitant]
     Active Substance: DEXPANTHENOL\NIACINAMIDE\PYRIDOXINE HYDROCHLORIDE\RIBOFLAVIN 5^-PHOSPHATE SODIUM\THIAMINE HYDROCHLOR
     Indication: Trigeminal neuropathy
     Dosage: UNK UNK, QW
     Dates: start: 201912, end: 202203
  46. VITAMIN B-COMPLEX [Concomitant]
     Active Substance: DEXPANTHENOL\NIACINAMIDE\PYRIDOXINE HYDROCHLORIDE\RIBOFLAVIN 5^-PHOSPHATE SODIUM\THIAMINE HYDROCHLOR
     Indication: Injury
     Dosage: UNK UNK, QW
     Route: 042
     Dates: start: 201912, end: 202203
  47. VITAMIN B-COMPLEX [Concomitant]
     Active Substance: DEXPANTHENOL\NIACINAMIDE\PYRIDOXINE HYDROCHLORIDE\RIBOFLAVIN 5^-PHOSPHATE SODIUM\THIAMINE HYDROCHLOR
     Dosage: UNK UNK, QW
     Route: 042
     Dates: start: 201912, end: 202203
  48. VITAMIN B-COMPLEX [Concomitant]
     Active Substance: DEXPANTHENOL\NIACINAMIDE\PYRIDOXINE HYDROCHLORIDE\RIBOFLAVIN 5^-PHOSPHATE SODIUM\THIAMINE HYDROCHLOR
     Dosage: UNK UNK, QW
     Dates: start: 201912, end: 202203
  49. HERBALS\WITHANIA SOMNIFERA ROOT [Concomitant]
     Active Substance: HERBALS\WITHANIA SOMNIFERA ROOT
     Indication: Trigeminal neuropathy
  50. HERBALS\WITHANIA SOMNIFERA ROOT [Concomitant]
     Active Substance: HERBALS\WITHANIA SOMNIFERA ROOT
     Indication: Injury
     Route: 065
  51. HERBALS\WITHANIA SOMNIFERA ROOT [Concomitant]
     Active Substance: HERBALS\WITHANIA SOMNIFERA ROOT
     Route: 065
  52. HERBALS\WITHANIA SOMNIFERA ROOT [Concomitant]
     Active Substance: HERBALS\WITHANIA SOMNIFERA ROOT
  53. Yograj guggulu [Concomitant]
     Indication: Trigeminal neuropathy
  54. Yograj guggulu [Concomitant]
     Indication: Injury
     Route: 065
  55. Yograj guggulu [Concomitant]
     Route: 065
  56. Yograj guggulu [Concomitant]
  57. DILANTIN [Concomitant]
     Active Substance: PHENYTOIN
     Indication: Trigeminal neuropathy
  58. DILANTIN [Concomitant]
     Active Substance: PHENYTOIN
     Indication: Injury
  59. DILANTIN [Concomitant]
     Active Substance: PHENYTOIN
     Route: 042
  60. DILANTIN [Concomitant]
     Active Substance: PHENYTOIN
     Route: 042
  61. DILANTIN [Concomitant]
     Active Substance: PHENYTOIN
  62. DILANTIN [Concomitant]
     Active Substance: PHENYTOIN
  63. DILANTIN [Concomitant]
     Active Substance: PHENYTOIN
     Route: 042
  64. DILANTIN [Concomitant]
     Active Substance: PHENYTOIN
     Route: 042

REACTIONS (3)
  - Drug ineffective [Unknown]
  - Headache [Recovering/Resolving]
  - Constipation [Recovering/Resolving]

NARRATIVE: CASE EVENT DATE: 20190101
